FAERS Safety Report 9126637 (Version 1)
Quarter: 2013Q1

REPORT INFORMATION
  Report Type: Report from Study
  Country: US (occurrence: US)
  Receive Date: 20130117
  Receipt Date: 20130117
  Transmission Date: 20140127
  Serious: Yes (Other)
  Sender: FDA-Public Use
  Company Number: US-ROCHE-1179097

PATIENT
  Sex: 0

DRUGS (2)
  1. BEVACIZUMAB [Suspect]
     Indication: MALIGNANT GLIOMA
     Route: 065
  2. TEMOZOLOMIDE [Suspect]
     Indication: MALIGNANT GLIOMA
     Route: 065

REACTIONS (9)
  - Thrombocytopenia [Unknown]
  - Lymphopenia [Unknown]
  - Alanine aminotransferase increased [Unknown]
  - Fatigue [Unknown]
  - Hyponatraemia [Unknown]
  - Hypokalaemia [Unknown]
  - Pulmonary embolism [Unknown]
  - Neuropathy peripheral [Unknown]
  - Infection [Unknown]
